FAERS Safety Report 8452805-8 (Version None)
Quarter: 2012Q2

REPORT INFORMATION
  Report Type: 
  Country: None (occurrence: None)
  Receive Date: 20120620
  Receipt Date: 20120426
  Transmission Date: 20120825
  Serious: No
  Sender: FDA-Public Use
  Company Number: US-VERTEX PHARMACEUTICALS INC.-AE-2012-006063

PATIENT
  Sex: Male
  Weight: 94.432 kg

DRUGS (3)
  1. PEGASYS [Concomitant]
     Indication: HEPATITIS C
     Route: 058
  2. INCIVEK [Suspect]
     Indication: HEPATITIS C
     Route: 048
  3. RIBAVIRIN [Concomitant]
     Indication: HEPATITIS C
     Route: 048

REACTIONS (3)
  - DEPRESSION [None]
  - DYSPNOEA [None]
  - DIARRHOEA [None]
